FAERS Safety Report 7443260-5 (Version None)
Quarter: 2011Q2

REPORT INFORMATION
  Report Type: 
  Country: None (occurrence: None)
  Receive Date: 20110428
  Receipt Date: 20110425
  Transmission Date: 20111010
  Serious: Yes (Hospitalization)
  Sender: FDA-Public Use
  Company Number: B0715685A

PATIENT
  Age: 72 Year
  Sex: Female

DRUGS (1)
  1. ROSIGLITAZONE MALEATE [Suspect]
     Route: 048
     Dates: start: 20010501, end: 20070501

REACTIONS (3)
  - MYOCARDIAL INFARCTION [None]
  - HEART RATE IRREGULAR [None]
  - CHEST PAIN [None]
